FAERS Safety Report 4791832-9 (Version None)
Quarter: 2005Q4

REPORT INFORMATION
  Report Type: 
  Country: None (occurrence: None)
  Receive Date: 20051007
  Receipt Date: 20050928
  Transmission Date: 20060501
  Serious: Yes (Death)
  Sender: FDA-Public Use
  Company Number: KR-JNJFOC-20050703279

PATIENT
  Sex: Male
  Weight: 66 kg

DRUGS (7)
  1. REMINYL [Suspect]
     Route: 048
     Dates: start: 20041007, end: 20050407
  2. REMINYL [Suspect]
     Indication: DEMENTIA
     Route: 048
     Dates: start: 20041007, end: 20050407
  3. REMINYL [Suspect]
     Indication: COGNITIVE DISORDER
     Route: 048
     Dates: start: 20041007, end: 20050407
  4. RISPERIDONE [Suspect]
     Route: 048
     Dates: start: 20040907, end: 20050407
  5. RISPERIDONE [Suspect]
     Route: 048
     Dates: start: 20040907, end: 20050407
  6. STILNOX [Suspect]
     Indication: SLEEP DISORDER
     Route: 048
     Dates: start: 20041029, end: 20041111
  7. PLAVIX [Concomitant]
     Indication: CEREBRAL INFARCTION
     Route: 048
     Dates: start: 20040903, end: 20041111

REACTIONS (4)
  - DRUG INTERACTION [None]
  - PNEUMONIA ASPIRATION [None]
  - RESPIRATORY DISTRESS [None]
  - STUPOR [None]
